FAERS Safety Report 16886647 (Version 3)
Quarter: 2019Q4

REPORT INFORMATION
  Report Type: Spontaneous
  Country: US (occurrence: US)
  Receive Date: 20191004
  Receipt Date: 20191022
  Transmission Date: 20200122
  Serious: Yes (Hospitalization)
  Sender: FDA-Public Use
  Company Number: US-SA-2019SA267943

PATIENT
  Age: 75 Year
  Sex: Female

DRUGS (15)
  1. ONDANSETRON [Concomitant]
     Active Substance: ONDANSETRON
  2. CLOBETASOL [Concomitant]
     Active Substance: CLOBETASOL
  3. BUMETANIDE. [Concomitant]
     Active Substance: BUMETANIDE
  4. DUPIXENT [Suspect]
     Active Substance: DUPILUMAB
     Dosage: 300 MG, QOW
     Route: 058
     Dates: start: 2019, end: 2019
  5. TRIAMCINOLONE [Concomitant]
     Active Substance: TRIAMCINOLONE
  6. CARVEDIOL [Concomitant]
     Active Substance: CARVEDILOL
  7. ACITRETIN. [Concomitant]
     Active Substance: ACITRETIN
  8. DUPIXENT [Suspect]
     Active Substance: DUPILUMAB
     Indication: ECZEMA NUMMULAR
     Dosage: 600 MG, 1X
     Route: 058
     Dates: start: 20190909, end: 20190909
  9. HYDROXYZINE HCL [Concomitant]
     Active Substance: HYDROXYZINE HYDROCHLORIDE
  10. ATORVASTATIN [Concomitant]
     Active Substance: ATORVASTATIN
  11. ALPRAZOLAM. [Concomitant]
     Active Substance: ALPRAZOLAM
  12. HYDROCORTISONE VALERATE. [Concomitant]
     Active Substance: HYDROCORTISONE VALERATE
  13. LEVOCETIRIZINE [Concomitant]
     Active Substance: LEVOCETIRIZINE
  14. HYDROXYZINE [Concomitant]
     Active Substance: HYDROXYZINE HYDROCHLORIDE
  15. BETAMETHASONE DIPROPIONATE. [Concomitant]
     Active Substance: BETAMETHASONE DIPROPIONATE

REACTIONS (3)
  - Erythema [Not Recovered/Not Resolved]
  - Vomiting [Not Recovered/Not Resolved]
  - Burning sensation [Not Recovered/Not Resolved]

NARRATIVE: CASE EVENT DATE: 2019
